FAERS Safety Report 5492252-4 (Version None)
Quarter: 2007Q4

REPORT INFORMATION
  Report Type: 
  Country: None (occurrence: None)
  Receive Date: 20071022
  Receipt Date: 20071017
  Transmission Date: 20080405
  Serious: Yes (Death, Life-Threatening)
  Sender: FDA-Public Use
  Company Number: AT-ASTRAZENECA-2007PK02140

PATIENT
  Age: 41 Year
  Sex: Female

DRUGS (1)
  1. DIPRIVAN [Suspect]
     Indication: SEDATIVE THERAPY

REACTIONS (1)
  - CARDIAC ARREST [None]
